FAERS Safety Report 5802852-7 (Version None)
Quarter: 2008Q3

REPORT INFORMATION
  Report Type: 
  Country: None (occurrence: None)
  Receive Date: 20080703
  Receipt Date: 20080626
  Transmission Date: 20090109
  Serious: Yes (Hospitalization)
  Sender: FDA-Public Use
  Company Number: 163-20785-08061703

PATIENT
  Age: 74 Year
  Sex: Female

DRUGS (10)
  1. THALOMID [Suspect]
     Indication: MULTIPLE MYELOMA
     Dosage: SEE IMAGE
     Route: 048
     Dates: start: 20080318, end: 20080301
  2. THALOMID [Suspect]
     Indication: MULTIPLE MYELOMA
     Dosage: SEE IMAGE
     Route: 048
     Dates: start: 20080301, end: 20080401
  3. THALOMID [Suspect]
     Indication: MULTIPLE MYELOMA
     Dosage: SEE IMAGE
     Route: 048
     Dates: start: 20080401, end: 20080401
  4. THALOMID [Suspect]
     Indication: MULTIPLE MYELOMA
     Dosage: SEE IMAGE
     Route: 048
     Dates: start: 20080514
  5. VELCADE [Concomitant]
  6. DEXAMETHASONE TAB [Concomitant]
  7. POTASSIUM (POTASSIUM) [Concomitant]
  8. COUMADIN [Concomitant]
  9. LASIX [Concomitant]
  10. FES04 (FERROUS SULFATE) [Concomitant]

REACTIONS (2)
  - ABASIA [None]
  - BLOOD POTASSIUM DECREASED [None]
